FAERS Safety Report 19051960 (Version 1)
Quarter: 2021Q1

REPORT INFORMATION
  Report Type: Spontaneous
  Country: DE (occurrence: DE)
  Receive Date: 20210324
  Receipt Date: 20210324
  Transmission Date: 20210420
  Serious: Yes (Hospitalization, Other)
  Sender: FDA-Public Use
  Company Number: DE-PFIZER INC-2021292999

PATIENT
  Age: 29 Year
  Sex: Female
  Weight: 66 kg

DRUGS (1)
  1. CYTOTEC [Suspect]
     Active Substance: MISOPROSTOL
     Indication: POLYPECTOMY
     Dosage: FREQ:{TOTAL};2 TABLETS, VAGINAL
     Route: 067
     Dates: start: 20210303, end: 20210303

REACTIONS (16)
  - Muscle spasticity [Not Recovered/Not Resolved]
  - Fear of death [Unknown]
  - Depression [Not Recovered/Not Resolved]
  - Vomiting [Not Recovered/Not Resolved]
  - Uterine tachysystole [Not Recovered/Not Resolved]
  - Asthenia [Unknown]
  - Anxiety [Not Recovered/Not Resolved]
  - Off label use [Unknown]
  - Pelvic pain [Not Recovered/Not Resolved]
  - Chills [Unknown]
  - Diarrhoea [Not Recovered/Not Resolved]
  - Hypoaesthesia [Not Recovered/Not Resolved]
  - Pyrexia [Not Recovered/Not Resolved]
  - Abdominal pain lower [Unknown]
  - Vaginal haemorrhage [Not Recovered/Not Resolved]
  - Hypoaesthesia [Not Recovered/Not Resolved]

NARRATIVE: CASE EVENT DATE: 202103
